FAERS Safety Report 8851231 (Version 2)
Quarter: 2012Q4

REPORT INFORMATION
  Report Type: 
  Country: US (occurrence: US)
  Receive Date: 20121019
  Receipt Date: 20121102
  Transmission Date: 20130627
  Serious: No
  Sender: FDA-Public Use
  Company Number: US-VERTEX PHARMACEUTICAL INC.-2012-022906

PATIENT
  Sex: Male
  Weight: 109 kg

DRUGS (14)
  1. INCIVEK [Suspect]
     Indication: HEPATITIS C
     Dosage: 750 mg, tid
     Route: 048
     Dates: start: 20120921, end: 201210
  2. RIBAVIRIN [Suspect]
     Indication: HEPATITIS C
     Dosage: 600 mg, bid
     Dates: start: 20120921
  3. PEGASYS [Suspect]
     Indication: HEPATITIS C
     Dosage: 180 ?g, UNK
     Dates: start: 20120921
  4. AMBIEN [Concomitant]
     Dosage: 10 mg, UNK
  5. ASPIRIN [Concomitant]
     Dosage: 81 mg, qd
  6. HUMALOG [Concomitant]
     Dosage: 100 units per ml
  7. LANTUS [Concomitant]
  8. VITAMIN D /00107901/ [Concomitant]
     Dosage: 1000 mg, qd
  9. LISINOPRIL [Concomitant]
     Dosage: 5 mg, qd
  10. PROPRANOLOL [Concomitant]
     Dosage: 20 mg, UNK
  11. CYMBALTA [Concomitant]
     Dosage: 30 mg, qd
  12. OMEPRAZOLE [Concomitant]
     Dosage: 20 mg, qd
  13. NEUPOGEN [Concomitant]
     Dosage: 480 ?g, UNK
  14. TEMAZEPAM [Concomitant]
     Dosage: 30 mg, qd

REACTIONS (2)
  - Rash [Recovered/Resolved]
  - Pruritus [Recovered/Resolved]
